FAERS Safety Report 6868748-7 (Version None)
Quarter: 2010Q3

REPORT INFORMATION
  Report Type: 
  Country: None (occurrence: None)
  Receive Date: 20100722
  Receipt Date: 20080611
  Transmission Date: 20110219
  Serious: No
  Sender: FDA-Public Use
  Company Number: US-PFIZER INC-2008050478

PATIENT
  Sex: Female
  Weight: 50 kg

DRUGS (7)
  1. CHANTIX [Suspect]
     Indication: SMOKING CESSATION THERAPY
     Route: 048
     Dates: start: 20080501
  2. KLONOPIN [Concomitant]
  3. ZYPREXA [Concomitant]
  4. TIAZAC [Concomitant]
  5. ATENOLOL [Concomitant]
  6. PAXIL [Concomitant]
  7. ZANTAC [Concomitant]

REACTIONS (5)
  - CONSTIPATION [None]
  - DISTURBANCE IN ATTENTION [None]
  - FATIGUE [None]
  - FLATULENCE [None]
  - NAUSEA [None]
